FAERS Safety Report 11938268 (Version 1)
Quarter: 2016Q1

REPORT INFORMATION
  Report Type: Other
  Country: AT (occurrence: AT)
  Receive Date: 20160122
  Receipt Date: 20160122
  Transmission Date: 20160526
  Serious: Yes (Other)
  Sender: FDA-Public Use
  Company Number: AT-HETERO LABS LTD-1046759

PATIENT
  Age: 71 Year
  Sex: Male

DRUGS (1)
  1. TORSEMIDE. [Suspect]
     Active Substance: TORSEMIDE
     Indication: PRODUCT USED FOR UNKNOWN INDICATION
     Route: 065

REACTIONS (1)
  - Porphyria non-acute [Recovered/Resolved]
